FAERS Safety Report 23361389 (Version 3)
Quarter: 2024Q1

REPORT INFORMATION
  Report Type: Other
  Country: US (occurrence: None)
  Receive Date: 20240103
  Receipt Date: 20240126
  Transmission Date: 20240410
  Serious: Yes (Hospitalization)
  Sender: FDA-Public Use
  Company Number: US-ROCHE-3484433

PATIENT
  Age: 55 Year
  Sex: Female

DRUGS (28)
  1. OCRELIZUMAB [Suspect]
     Active Substance: OCRELIZUMAB
     Indication: Relapsing-remitting multiple sclerosis
     Dosage: LOADING DOSE
     Route: 065
     Dates: start: 20210512
  2. OCRELIZUMAB [Suspect]
     Active Substance: OCRELIZUMAB
     Dosage: LOADING DOSE
     Route: 065
     Dates: start: 20210527
  3. OCRELIZUMAB [Suspect]
     Active Substance: OCRELIZUMAB
     Route: 065
     Dates: start: 20211115
  4. OCRELIZUMAB [Suspect]
     Active Substance: OCRELIZUMAB
     Route: 065
     Dates: start: 20220516
  5. OCRELIZUMAB [Suspect]
     Active Substance: OCRELIZUMAB
     Route: 065
     Dates: start: 20221117
  6. OCRELIZUMAB [Suspect]
     Active Substance: OCRELIZUMAB
     Route: 065
     Dates: start: 20230515
  7. ASPIRIN [Concomitant]
     Active Substance: ASPIRIN
     Dates: start: 20150203
  8. ATORVASTATIN [Concomitant]
     Active Substance: ATORVASTATIN
     Dates: start: 20121116
  9. VITAMIN D3 [Concomitant]
     Active Substance: CHOLECALCIFEROL
     Dates: start: 20141119
  10. FLUTICASONE [Concomitant]
     Active Substance: FLUTICASONE
     Dates: start: 20120207, end: 20230701
  11. GABAPENTIN [Concomitant]
     Active Substance: GABAPENTIN
     Dates: start: 20120110, end: 20220309
  12. IBUPROFEN [Concomitant]
     Active Substance: IBUPROFEN
     Indication: Pain
     Dates: start: 20150319, end: 20230803
  13. MONTELUKAST [Concomitant]
     Active Substance: MONTELUKAST SODIUM
     Dates: start: 20091207, end: 20220309
  14. OMEPRAZOLE [Concomitant]
     Active Substance: OMEPRAZOLE
     Dates: start: 20110119
  15. ONDANSETRON [Concomitant]
     Active Substance: ONDANSETRON
     Dates: start: 20100512, end: 20230717
  16. POLYETHYLENE GLYCOL [Concomitant]
     Active Substance: POLYETHYLENE GLYCOL
     Dates: start: 20151118, end: 20220613
  17. RIZATRIPTAN [Concomitant]
     Active Substance: RIZATRIPTAN
     Dates: start: 20091118, end: 20230117
  18. SERTRALINE [Concomitant]
     Active Substance: SERTRALINE HYDROCHLORIDE
     Dates: start: 20131220
  19. BUPROPION [Concomitant]
     Active Substance: BUPROPION
  20. DIVALPROEX SODIUM [Concomitant]
     Active Substance: DIVALPROEX SODIUM
     Dates: start: 20220613, end: 20220620
  21. BACLOFEN [Concomitant]
     Active Substance: BACLOFEN
     Dates: start: 20230117
  22. METOCLOPRAMIDE [Concomitant]
     Active Substance: METOCLOPRAMIDE
     Dates: start: 20221207, end: 20221208
  23. UBROGEPANT [Concomitant]
     Active Substance: UBROGEPANT
     Dates: start: 20230117
  24. LISINOPRIL [Concomitant]
     Active Substance: LISINOPRIL
     Dates: start: 20210706, end: 20210909
  25. ROPINIROLE [Concomitant]
     Active Substance: ROPINIROLE
     Dates: start: 20210819
  26. NITROGLYCERIN [Concomitant]
     Active Substance: NITROGLYCERIN
     Dates: start: 20230201
  27. MAGNESIUM [Concomitant]
     Active Substance: MAGNESIUM
     Dates: start: 20220309
  28. EPINEPHRINE [Concomitant]
     Active Substance: EPINEPHRINE
     Indication: Hypersensitivity
     Dates: start: 20220915

REACTIONS (1)
  - Human anaplasmosis [Recovered/Resolved]

NARRATIVE: CASE EVENT DATE: 20230727
